FAERS Safety Report 4619720-9 (Version None)
Quarter: 2005Q1

REPORT INFORMATION
  Report Type: 
  Country: None (occurrence: None)
  Receive Date: 20050321
  Receipt Date: 20050321
  Transmission Date: 20050727
  Serious: Yes (Hospitalization)
  Sender: FDA-Public Use
  Company Number: None

PATIENT
  Age: 51 Year
  Sex: Female
  Weight: 60.782 kg

DRUGS (1)
  1. GABATRIL 4 MG [Suspect]
     Dosage: PO QID + 2 Q HS
     Route: 048

REACTIONS (6)
  - CONFUSIONAL STATE [None]
  - FALL [None]
  - LACERATION [None]
  - LOSS OF CONSCIOUSNESS [None]
  - SPEECH DISORDER [None]
  - THINKING ABNORMAL [None]
